FAERS Safety Report 5492072-0 (Version None)
Quarter: 2007Q4

REPORT INFORMATION
  Report Type: 
  Country: None (occurrence: None)
  Receive Date: 20071015
  Receipt Date: 20070709
  Transmission Date: 20080405
  Serious: No
  Sender: FDA-Public Use
  Company Number: 2007SP002492

PATIENT
  Age: 51 Year
  Sex: Male
  Weight: 80.7403 kg

DRUGS (1)
  1. LUNESTA [Suspect]
     Indication: INSOMNIA
     Dosage: 3 MG; HS; ORAL
     Route: 048
     Dates: start: 20070703

REACTIONS (4)
  - DRY SKIN [None]
  - FEELING ABNORMAL [None]
  - RASH [None]
  - SUNBURN [None]
